FAERS Safety Report 4402954-6 (Version None)
Quarter: 2004Q3

REPORT INFORMATION
  Report Type: 
  Country: None (occurrence: None)
  Receive Date: 20040721
  Receipt Date: 20030709
  Transmission Date: 20050211
  Serious: No
  Sender: FDA-Public Use
  Company Number: US-GLAXOSMITHKLINE-A0416596A

PATIENT
  Age: 23 Year
  Sex: Female

DRUGS (3)
  1. IMITREX [Suspect]
     Indication: HEADACHE
     Dosage: 100MG TWICE PER DAY
     Route: 048
     Dates: start: 20030101
  2. ATENOLOL [Concomitant]
     Dosage: 50MG PER DAY
     Route: 065
  3. ULTRACET [Concomitant]

REACTIONS (2)
  - HAIR GROWTH ABNORMAL [None]
  - WEIGHT INCREASED [None]
